FAERS Safety Report 25506052 (Version 1)
Quarter: 2025Q3

REPORT INFORMATION
  Report Type: Spontaneous
  Country: US (occurrence: US)
  Receive Date: 20250702
  Receipt Date: 20250702
  Transmission Date: 20251020
  Serious: Yes (Other)
  Sender: RADIUS PHARM
  Company Number: US-RADIUS HEALTH, INC.-2024US008710

PATIENT
  Age: 54 Year
  Sex: Female

DRUGS (1)
  1. TYMLOS [Suspect]
     Active Substance: ABALOPARATIDE
     Indication: Senile osteoporosis
     Route: 058
     Dates: start: 202403, end: 20240919

REACTIONS (3)
  - Product dose omission issue [Unknown]
  - Throat tightness [Unknown]
  - Drug hypersensitivity [Unknown]

NARRATIVE: CASE EVENT DATE: 20240315
